FAERS Safety Report 7107354-6 (Version None)
Quarter: 2010Q4

REPORT INFORMATION
  Report Type: 
  Country: None (occurrence: None)
  Receive Date: 20101117
  Receipt Date: 20101102
  Transmission Date: 20110411
  Serious: Yes (Other)
  Sender: FDA-Public Use
  Company Number: US-SHIRE-SPV1-2010-01921

PATIENT
  Sex: Female
  Weight: 58.957 kg

DRUGS (5)
  1. CARBATROL [Suspect]
     Indication: NEURALGIA
     Dosage: 200MG QAM + 300MG QHS
     Route: 048
     Dates: start: 20090101, end: 20101002
  2. CARBATROL [Suspect]
     Dosage: 600MG DAILY
     Route: 048
     Dates: start: 20101003, end: 20101021
  3. CARBATROL [Suspect]
     Dosage: 400MG QAM + 300MG QHS
     Route: 048
     Dates: start: 20101022, end: 20101027
  4. CARBATROL [Suspect]
     Dosage: 400MG QAM + 600MG QHS
     Route: 048
     Dates: start: 20101027
  5. CARBATROL [Suspect]
     Dosage: UNK
     Route: 048
     Dates: start: 20090101, end: 20100901

REACTIONS (3)
  - DRUG INEFFECTIVE [None]
  - LARYNGOSPASM [None]
  - OROPHARYNGEAL PAIN [None]
